FAERS Safety Report 6442816-6 (Version None)
Quarter: 2009Q4

REPORT INFORMATION
  Report Type: 
  Country: None (occurrence: None)
  Receive Date: 20091117
  Receipt Date: 20091112
  Transmission Date: 20100525
  Serious: Yes (Life-Threatening, Hospitalization, Other)
  Sender: FDA-Public Use
  Company Number: US-RB-024823-09

PATIENT
  Sex: Female

DRUGS (4)
  1. SUBOXONE [Suspect]
     Route: 060
     Dates: start: 20090601
  2. SUBOXONE [Suspect]
     Indication: PAIN
     Route: 060
     Dates: start: 20090601
  3. NEURONTIN [Concomitant]
     Indication: BACK PAIN
     Route: 065
  4. XANAX [Suspect]
     Indication: ANXIETY
     Dosage: DOSING INFORMATION UNKNOWN
     Route: 048

REACTIONS (3)
  - ANXIETY [None]
  - OVERDOSE [None]
  - PNEUMONIA [None]
